FAERS Safety Report 19946446 (Version 1)
Quarter: 2021Q4

REPORT INFORMATION
  Report Type: Report from Study
  Country: None (occurrence: US)
  Receive Date: 20211013
  Receipt Date: 20211013
  Transmission Date: 20220303
  Serious: Yes (Other)
  Sender: FDA-Public Use
  Company Number: US-ABBVIE-21K-163-4114986-00

PATIENT
  Sex: Female

DRUGS (3)
  1. HUMIRA [Suspect]
     Active Substance: ADALIMUMAB
     Indication: Ankylosing spondylitis
     Dosage: CITRATE FREE
     Route: 058
  2. MODERNA COVID-19 VACCINE [Suspect]
     Active Substance: CX-024414
     Indication: COVID-19 immunisation
     Dosage: 1ST DOSE
     Route: 030
     Dates: start: 20210602, end: 20210602
  3. MODERNA COVID-19 VACCINE [Suspect]
     Active Substance: CX-024414
     Dosage: 2ND DOSE
     Route: 030
     Dates: start: 20210702, end: 20210702

REACTIONS (10)
  - Seizure [Unknown]
  - Ureteral disorder [Unknown]
  - Weight increased [Unknown]
  - Post procedural complication [Unknown]
  - Feeling abnormal [Unknown]
  - Migraine [Unknown]
  - Pain [Unknown]
  - Pain in extremity [Unknown]
  - Ankylosing spondylitis [Unknown]
  - Paraesthesia [Unknown]

NARRATIVE: CASE EVENT DATE: 20200101
